FAERS Safety Report 25167335 (Version 1)
Quarter: 2025Q2

REPORT INFORMATION
  Report Type: Spontaneous
  Country: US (occurrence: US)
  Receive Date: 20250407
  Receipt Date: 20250407
  Transmission Date: 20250717
  Serious: No
  Sender: SANOFI AVENTIS
  Company Number: US-SA-2025SA095878

PATIENT
  Age: 54 Year
  Sex: Female
  Weight: 82.993 kg

DRUGS (1)
  1. DUPIXENT [Suspect]
     Active Substance: DUPILUMAB
     Indication: Dermatitis atopic
     Dosage: 300 MG, QOW
     Route: 058
     Dates: start: 20240620

REACTIONS (2)
  - Gait disturbance [Unknown]
  - Foot operation [Unknown]

NARRATIVE: CASE EVENT DATE: 20250301
